FAERS Safety Report 23205572 (Version 1)
Quarter: 2023Q4

REPORT INFORMATION
  Report Type: Report from Study
  Country: IT (occurrence: IT)
  Receive Date: 20231120
  Receipt Date: 20231120
  Transmission Date: 20240110
  Serious: Yes (Other)
  Sender: FDA-Public Use
  Company Number: IT-MYLANLABS-2023M1122553

PATIENT
  Age: 40 Year
  Sex: Female

DRUGS (1)
  1. FONDAPARINUX [Suspect]
     Active Substance: FONDAPARINUX
     Indication: Thrombocytopenia
     Dosage: UNK
     Route: 065

REACTIONS (2)
  - Mesenteric vein thrombosis [Unknown]
  - Off label use [Unknown]
